FAERS Safety Report 12709260 (Version 1)
Quarter: 2016Q3

REPORT INFORMATION
  Report Type: Spontaneous
  Country: US (occurrence: None)
  Receive Date: 20160901
  Receipt Date: 20160901
  Transmission Date: 20161109
  Serious: Yes (Disabling)
  Sender: FDA-Public Use
  Company Number: None

PATIENT
  Age: 56 Year
  Sex: Female
  Weight: 58.97 kg

DRUGS (4)
  1. RESTASIS [Suspect]
     Active Substance: CYCLOSPORINE
     Indication: DRY EYE
     Dosage: 20 0.4 ML VIALS TWICE A DAY INTO THE EYE
     Route: 031
     Dates: start: 20151117, end: 20151231
  2. FISH OIL [Concomitant]
     Active Substance: FISH OIL
  3. MULTI-VITAMIN [Concomitant]
     Active Substance: .ALPHA.-TOCOPHEROL ACETATE, DL-\ASCORBIC ACID\CYANOCOBALAMIN\FLUORIDE ION\FOLIC ACID\NIACIN\PYRIDOXINE\RIBOFLAVIN\THIAMINE\VITAMIN A\VITAMIN D
  4. CALCIUM SUPPLEMENT [Concomitant]
     Active Substance: CALCIUM

REACTIONS (2)
  - Vision blurred [None]
  - Visual impairment [None]

NARRATIVE: CASE EVENT DATE: 20151117
